FAERS Safety Report 6582552-9 (Version None)
Quarter: 2010Q1

REPORT INFORMATION
  Report Type: 
  Country: None (occurrence: None)
  Receive Date: 20100203
  Receipt Date: 20100119
  Transmission Date: 20100710
  Serious: Yes (Other)
  Sender: FDA-Public Use
  Company Number: 2009S1004064

PATIENT
  Age: 38 Year
  Sex: Female

DRUGS (12)
  1. PHOSPHOSODA FLAVOR NOT SPECIFIED [Suspect]
     Indication: COLONOSCOPY
     Dosage: 90 ML; TOTAL; PO
     Route: 048
     Dates: start: 20080930, end: 20081001
  2. TYLENOL (CAPLET) [Concomitant]
  3. ALBUTEROL [Concomitant]
  4. CLONAZEPAM [Concomitant]
  5. CYMBALTA [Concomitant]
  6. SKELAXIN [Concomitant]
  7. MORPHINE [Concomitant]
  8. SEROQUEL [Concomitant]
  9. TRAZODONE [Concomitant]
  10. LYRICA [Concomitant]
  11. ONDANSETRON [Concomitant]
  12. COUMADIN [Concomitant]

REACTIONS (1)
  - NEPHROCALCINOSIS [None]
